FAERS Safety Report 17639607 (Version 1)
Quarter: 2020Q2

REPORT INFORMATION
  Report Type: Spontaneous
  Country: CN (occurrence: CN)
  Receive Date: 20200407
  Receipt Date: 20200407
  Transmission Date: 20200713
  Serious: Yes (Hospitalization, Other)
  Sender: FDA-Public Use
  Company Number: CN-BAYER-2020-055920

PATIENT
  Age: 81 Year
  Sex: Female

DRUGS (2)
  1. MOXIFLOXACIN IV [Suspect]
     Active Substance: MOXIFLOXACIN
     Indication: PNEUMONIA
     Dosage: 0.4 G, QD
     Route: 041
  2. MEROPENEM. [Suspect]
     Active Substance: MEROPENEM
     Indication: PNEUMONIA
     Dosage: 1 G, BID
     Route: 041

REACTIONS (2)
  - Pneumonia chlamydial [Recovering/Resolving]
  - Pneumonia [Recovering/Resolving]
